FAERS Safety Report 20993742 (Version 1)
Quarter: 2022Q2

REPORT INFORMATION
  Report Type: Spontaneous
  Country: None (occurrence: A1)
  Receive Date: 20220622
  Receipt Date: 20220622
  Transmission Date: 20220721
  Serious: Yes (Hospitalization)
  Sender: FDA-Public Use
  Company Number: A1-Avion Pharmaceuticals, LLC-2130162

PATIENT
  Age: 63 Year
  Sex: Male

DRUGS (6)
  1. DHIVY [Suspect]
     Active Substance: CARBIDOPA\LEVODOPA
     Indication: Parkinson^s disease
     Route: 065
  2. BENSERAZIDE [Suspect]
     Active Substance: BENSERAZIDE
     Route: 065
  3. PRAMIPEXOLE [Suspect]
     Active Substance: PRAMIPEXOLE
     Route: 065
  4. SELEGILINE HYDROCHLORIDE [Suspect]
     Active Substance: SELEGILINE HYDROCHLORIDE
     Route: 065
  5. QUETIAPINE [Suspect]
     Active Substance: QUETIAPINE
     Route: 065
  6. ENTACAPONE [Suspect]
     Active Substance: ENTACAPONE
     Route: 065

REACTIONS (7)
  - Delusional disorder, jealous type [Recovering/Resolving]
  - Libido increased [Unknown]
  - Excessive masturbation [Unknown]
  - Binge eating [Unknown]
  - Hallucination, visual [Unknown]
  - Reduced facial expression [Unknown]
  - Impulse-control disorder [Unknown]
